FAERS Safety Report 19952761 (Version 1)
Quarter: 2021Q4

REPORT INFORMATION
  Report Type: Spontaneous
  Country: US (occurrence: US)
  Receive Date: 20211012
  Receipt Date: 20211012
  Transmission Date: 20220303
  Serious: Yes (Hospitalization, Other)
  Sender: FDA-Public Use
  Company Number: None

PATIENT
  Age: 80 Year
  Sex: Male

DRUGS (2)
  1. EPLERENONE [Suspect]
     Active Substance: EPLERENONE
     Indication: Cardiac failure congestive
     Dosage: IN THE MORNING
     Route: 048
     Dates: start: 20210122, end: 20210806
  2. METOPROLOL SUCCINATE [Suspect]
     Active Substance: METOPROLOL SUCCINATE
     Indication: Cardiac failure congestive
     Route: 048
     Dates: start: 20201110, end: 20210806

REACTIONS (3)
  - Gait disturbance [None]
  - Orthostatic hypotension [None]
  - Dizziness [None]

NARRATIVE: CASE EVENT DATE: 20210811
